FAERS Safety Report 9433212 (Version 1)
Quarter: 2013Q3

REPORT INFORMATION
  Report Type: Spontaneous
  Country: US (occurrence: US)
  Receive Date: 20130731
  Receipt Date: 20130731
  Transmission Date: 20140515
  Serious: Yes (Hospitalization, Other)
  Sender: FDA-Public Use
  Company Number: PHHY2013US079687

PATIENT
  Age: 54 Year
  Sex: Female

DRUGS (6)
  1. METFORMIN [Suspect]
     Dosage: UNK UKN, UNK
  2. ENALAPRIL [Concomitant]
     Dosage: UNK UKN, UNK
  3. GLIMEPIRIDE [Concomitant]
     Dosage: UNK UKN, UNK
  4. IMIPRAMINE [Concomitant]
  5. ASPIRIN [Concomitant]
     Dosage: UNK UKN, UNK
  6. IBUPROFEN [Concomitant]
     Dosage: UNK UKN, UNK

REACTIONS (21)
  - Toxicity to various agents [Recovered/Resolved]
  - Lactic acidosis [Recovered/Resolved]
  - Abdominal pain [Recovered/Resolved]
  - Vomiting [Recovered/Resolved]
  - Confusional state [Recovered/Resolved]
  - Dyspnoea [Recovered/Resolved]
  - Moaning [Recovered/Resolved]
  - Incoherent [Recovered/Resolved]
  - Agitation [Recovered/Resolved]
  - Malaise [Recovered/Resolved]
  - Asthenia [Recovered/Resolved]
  - Chills [Recovered/Resolved]
  - Tachypnoea [Recovered/Resolved]
  - Somnolence [Recovered/Resolved]
  - Pupillary light reflex tests abnormal [Recovered/Resolved]
  - Dry mouth [Recovered/Resolved]
  - Acidosis [Recovered/Resolved]
  - Altered state of consciousness [Recovered/Resolved]
  - Hypophagia [Recovered/Resolved]
  - Skin warm [Recovered/Resolved]
  - Drug level increased [Recovered/Resolved]
